FAERS Safety Report 22529883 (Version 1)
Quarter: 2023Q2

REPORT INFORMATION
  Report Type: Report from Study
  Country: US (occurrence: US)
  Receive Date: 20230607
  Receipt Date: 20230607
  Transmission Date: 20230722
  Serious: Yes (Hospitalization, Other)
  Sender: FDA-Public Use
  Company Number: US-INCYTE CORPORATION-2023IN005664

PATIENT

DRUGS (1)
  1. JAKAFI [Suspect]
     Active Substance: RUXOLITINIB
     Dosage: 10 MILLIGRAM, TWICE A DAY
     Route: 048

REACTIONS (2)
  - Hypotension [Unknown]
  - Kidney infection [Unknown]

NARRATIVE: CASE EVENT DATE: 20230501
